FAERS Safety Report 16455272 (Version 1)
Quarter: 2019Q2

REPORT INFORMATION
  Report Type: Spontaneous
  Country: HR (occurrence: HR)
  Receive Date: 20190620
  Receipt Date: 20190620
  Transmission Date: 20190711
  Serious: Yes (Other)
  Sender: FDA-Public Use
  Company Number: HR-TEVA-2019-HR-1066448

PATIENT
  Sex: Male

DRUGS (3)
  1. PRAXITEN 15 [Suspect]
     Active Substance: OXAZEPAM
     Route: 048
     Dates: start: 20190320, end: 20190320
  2. LINEX FORTE [Suspect]
     Active Substance: PROBIOTICS NOS
     Route: 048
     Dates: start: 20190320, end: 20190320
  3. TEOLIN RETARD [Suspect]
     Active Substance: THEOPHYLLINE
     Route: 048
     Dates: start: 20190320, end: 20190320

REACTIONS (9)
  - Oliguria [Unknown]
  - Ventricular tachycardia [Unknown]
  - Depressed level of consciousness [Unknown]
  - Hypotension [Not Recovered/Not Resolved]
  - Vomiting [Unknown]
  - Extrapyramidal disorder [Unknown]
  - Blood creatinine increased [Unknown]
  - Suicide attempt [Unknown]
  - Intentional overdose [Unknown]

NARRATIVE: CASE EVENT DATE: 20190320
